FAERS Safety Report 4830288-4 (Version None)
Quarter: 2005Q4

REPORT INFORMATION
  Report Type: 
  Country: None (occurrence: None)
  Receive Date: 20051114
  Receipt Date: 20051101
  Transmission Date: 20060501
  Serious: Yes (Other)
  Sender: FDA-Public Use
  Company Number: 2005145793

PATIENT
  Age: 80 Year
  Sex: Female

DRUGS (12)
  1. SULPERAZON (SULBACTAM, CEFOPERAZONE) [Suspect]
     Indication: ILL-DEFINED DISORDER
     Dosage: INTRAVENOUS
     Route: 042
     Dates: start: 20050105, end: 20050127
  2. SOLU-MEDROL [Concomitant]
  3. FLAVERIC  (BENPROPERINE PHOSPHATE) [Concomitant]
  4. THEO-DUR [Concomitant]
  5. ADALAT [Concomitant]
  6. BUFFERIN 81 (ACETYLSALICYLIC ACID, ALUMINIUM  GLYCINATE, MAGNESIUM CAR [Concomitant]
  7. FLUITRAN (TRICHLORMETHIAZIDE) [Concomitant]
  8. DIGOXIN [Concomitant]
  9. LASIX [Concomitant]
  10. LOXONIN (LOXOPROFEN SODIUM) [Concomitant]
  11. AMINOPHYLLIN [Concomitant]
  12. MINOMYCIN (NEOMYCIN) [Concomitant]

REACTIONS (1)
  - CONVULSION [None]
